FAERS Safety Report 5174446-0 (Version None)
Quarter: 2006Q4

REPORT INFORMATION
  Report Type: 
  Country: None (occurrence: None)
  Receive Date: 20061206
  Receipt Date: 20061123
  Transmission Date: 20070319
  Serious: Yes (Hospitalization)
  Sender: FDA-Public Use
  Company Number: 2006135917

PATIENT
  Age: 44 Year
  Sex: Male
  Weight: 150 kg

DRUGS (8)
  1. SUTENT [Suspect]
     Indication: RENAL CELL CARCINOMA STAGE UNSPECIFIED
     Dosage: 50 MG (50 MG, 1 IN 1 D), ORAL
     Route: 048
     Dates: start: 20060608
  2. MULTIVITAMIN [Concomitant]
  3. ACETAMINOPHEN [Concomitant]
  4. ENOXAPARIN SODIUM [Concomitant]
  5. ATACAND HCT [Concomitant]
  6. TRAMADOL HCL [Concomitant]
  7. RAMIPRIL [Concomitant]
  8. LIPITOR [Concomitant]

REACTIONS (2)
  - PLEURITIC PAIN [None]
  - PULMONARY EMBOLISM [None]
